FAERS Safety Report 9934153 (Version 2)
Quarter: 2014Q1

REPORT INFORMATION
  Report Type: Report from Study
  Country: NL (occurrence: NL)
  Receive Date: 20140228
  Receipt Date: 20140228
  Transmission Date: 20141002
  Serious: Yes (Death)
  Sender: FDA-Public Use
  Company Number: NL-ABBVIE-13P-114-1115458-00

PATIENT
  Age: 88 Year
  Sex: Male

DRUGS (1)
  1. LEUPRORELINE (LUCRIN) [Suspect]
     Indication: PROSTATE CANCER
     Route: 058
     Dates: start: 20130326

REACTIONS (1)
  - Death [Fatal]
